FAERS Safety Report 15478710 (Version 1)
Quarter: 2018Q4

REPORT INFORMATION
  Report Type: Spontaneous
  Country: US (occurrence: US)
  Receive Date: 20181009
  Receipt Date: 20181009
  Transmission Date: 20190205
  Serious: Yes (Other)
  Sender: FDA-Public Use
  Company Number: US-PFIZER INC-2018400086

PATIENT
  Age: 1 Year
  Sex: Male

DRUGS (1)
  1. REVATIO [Suspect]
     Active Substance: SILDENAFIL CITRATE
     Dosage: UNK UNK, 3X/DAY
     Route: 048

REACTIONS (5)
  - Tracheal haemorrhage [Unknown]
  - Lower respiratory tract infection viral [Unknown]
  - Pyrexia [Unknown]
  - Nasopharyngitis [Unknown]
  - Product use issue [Unknown]
